FAERS Safety Report 25735416 (Version 1)
Quarter: 2025Q3

REPORT INFORMATION
  Report Type: Spontaneous
  Country: US (occurrence: None)
  Receive Date: 20250827
  Receipt Date: 20250827
  Transmission Date: 20251021
  Serious: Yes (Other)
  Sender: FDA-CTU
  Company Number: None

PATIENT
  Age: 22 Year
  Sex: Female
  Weight: 80.29 kg

DRUGS (2)
  1. NEXPLANON [Suspect]
     Active Substance: ETONOGESTREL
  2. ATOMOXETINE [Concomitant]
     Active Substance: ATOMOXETINE
     Dates: start: 20250714, end: 20250819

REACTIONS (10)
  - Thirst [None]
  - Decreased appetite [None]
  - Chromaturia [None]
  - Pruritus [None]
  - Yellow skin [None]
  - Drug-induced liver injury [None]
  - Alanine aminotransferase increased [None]
  - Aspartate aminotransferase increased [None]
  - Blood alkaline phosphatase increased [None]
  - Blood bilirubin increased [None]

NARRATIVE: CASE EVENT DATE: 20250819
